FAERS Safety Report 9829886 (Version 3)
Quarter: 2014Q1

REPORT INFORMATION
  Report Type: Spontaneous
  Country: CA (occurrence: CA)
  Receive Date: 20140120
  Receipt Date: 20140203
  Transmission Date: 20141002
  Serious: Yes (Other)
  Sender: FDA-Public Use
  Company Number: CA-SA-2014SA006101

PATIENT
  Age: 16 Year
  Sex: Female

DRUGS (2)
  1. CEREZYME [Suspect]
     Indication: GAUCHER^S DISEASE
     Dosage: DOSE:2000 UNIT(S)
     Route: 042
     Dates: start: 2002
  2. ANTIEPILEPTICS [Concomitant]
     Indication: CONVULSION

REACTIONS (6)
  - Convulsion [Recovered/Resolved]
  - Fall [Recovered/Resolved]
  - Loss of consciousness [Recovered/Resolved]
  - Bone pain [Recovered/Resolved]
  - Joint injury [Recovered/Resolved]
  - Hypokinesia [Recovered/Resolved]
